FAERS Safety Report 8434087-6 (Version None)
Quarter: 2012Q2

REPORT INFORMATION
  Report Type: 
  Country: None (occurrence: None)
  Receive Date: 20120613
  Receipt Date: 20120530
  Transmission Date: 20120825
  Serious: Yes (Life-Threatening, Other)
  Sender: FDA-Public Use
  Company Number: FR-PFIZER INC-2012133254

PATIENT
  Age: 48 Year
  Sex: Male

DRUGS (6)
  1. LYRICA [Suspect]
     Indication: ANAESTHETIC PREMEDICATION
     Dosage: 150 MG, SINGLE
     Route: 048
     Dates: start: 20100617, end: 20100617
  2. ROCURONIUM BROMIDE [Suspect]
     Indication: INDUCTION OF ANAESTHESIA
     Dosage: 50 MG, SINGLE
     Route: 042
     Dates: start: 20100617, end: 20100617
  3. DIPRIVAN [Suspect]
     Indication: INDUCTION OF ANAESTHESIA
     Dosage: 400 MG, UNK
     Route: 042
     Dates: start: 20100617, end: 20100617
  4. ATARAX [Suspect]
     Indication: ANAESTHETIC PREMEDICATION
     Dosage: 50 MG ONE INJECTION
     Route: 048
     Dates: start: 20100617, end: 20100617
  5. SUFENTANIL CITRATE [Suspect]
     Indication: ANALGESIC THERAPY
     Dosage: 50 UG, UNK
     Route: 042
     Dates: start: 20100617, end: 20100617
  6. ROPIVACAINE HYDROCHLORIDE [Suspect]
     Indication: NEUROMUSCULAR BLOCKADE
     Dosage: 20 MG, SINGLE
     Route: 042
     Dates: start: 20100617, end: 20100617

REACTIONS (4)
  - RESPIRATORY ARREST [None]
  - CARDIAC ARREST [None]
  - ANAPHYLACTIC SHOCK [None]
  - MYOCARDIAL INFARCTION [None]
